FAERS Safety Report 8385815-X (Version None)
Quarter: 2012Q2

REPORT INFORMATION
  Report Type: 
  Country: None (occurrence: None)
  Receive Date: 20120525
  Receipt Date: 20120521
  Transmission Date: 20120825
  Serious: Yes (Hospitalization)
  Sender: FDA-Public Use
  Company Number: US-BAYER-2012-023572

PATIENT
  Age: 23 Year
  Sex: Female
  Weight: 59.3 kg

DRUGS (3)
  1. ERYTHROMYCIN [Concomitant]
  2. YASMIN [Suspect]
     Dosage: UNK
     Dates: start: 20060501, end: 20070201
  3. MULTI-VITAMIN [Concomitant]

REACTIONS (7)
  - PULMONARY EMBOLISM [None]
  - DYSPNOEA [None]
  - EMOTIONAL DISTRESS [None]
  - PAIN [None]
  - GENERAL PHYSICAL HEALTH DETERIORATION [None]
  - INJURY [None]
  - ANXIETY [None]
